FAERS Safety Report 22649194 (Version 2)
Quarter: 2023Q2

REPORT INFORMATION
  Report Type: Report from Study
  Country: US (occurrence: US)
  Receive Date: 20230628
  Receipt Date: 20230629
  Transmission Date: 20230722
  Serious: No
  Sender: FDA-Public Use
  Company Number: US-002147023-NVSC2023US146976

PATIENT
  Sex: Female
  Weight: 63.5 kg

DRUGS (5)
  1. COSENTYX [Suspect]
     Active Substance: SECUKINUMAB
     Indication: Psoriasis
     Dosage: UNK
     Route: 065
  2. CLOBETASOL [Concomitant]
     Active Substance: CLOBETASOL
     Indication: Psoriasis
     Dosage: UNK
     Route: 065
  3. ATORVASTATIN [Concomitant]
     Active Substance: ATORVASTATIN
     Indication: Psoriasis
     Dosage: UNK
     Route: 065
  4. CALCIUM [Concomitant]
     Active Substance: CALCIUM
     Indication: Psoriasis
     Dosage: UNK
     Route: 065
  5. VITAMIN D3 [Concomitant]
     Active Substance: CHOLECALCIFEROL
     Indication: Psoriasis
     Dosage: UNK
     Route: 065

REACTIONS (6)
  - Psoriasis [Unknown]
  - Pruritus [Unknown]
  - Erythema [Unknown]
  - Pustule [Unknown]
  - Arthralgia [Unknown]
  - Therapeutic product effect incomplete [Unknown]
